FAERS Safety Report 12125123 (Version 2)
Quarter: 2016Q1

REPORT INFORMATION
  Report Type: Spontaneous
  Country: US (occurrence: US)
  Receive Date: 20160229
  Receipt Date: 20160317
  Transmission Date: 20160526
  Serious: Yes (Other)
  Sender: FDA-Public Use
  Company Number: US-APOTEX-2016AP006794

PATIENT
  Sex: Female

DRUGS (2)
  1. DULOXETINE HYDROCHLORIDE DELAYED-RELEASE CAPSULES [Suspect]
     Active Substance: DULOXETINE HYDROCHLORIDE
     Indication: PRODUCT USED FOR UNKNOWN INDICATION
     Dosage: 30 MG, UNKNOWN
     Route: 065
     Dates: start: 2015
  2. DULOXETINE HYDROCHLORIDE DELAYED-RELEASE CAPSULES [Suspect]
     Active Substance: DULOXETINE HYDROCHLORIDE
     Dosage: 60 MG,DAILY
     Route: 065
     Dates: start: 2015

REACTIONS (11)
  - Contusion [Unknown]
  - Peripheral swelling [Unknown]
  - Dysarthria [Unknown]
  - Haematoma [Unknown]
  - Headache [Unknown]
  - Arthralgia [Unknown]
  - Vertigo [Not Recovered/Not Resolved]
  - Tinnitus [Not Recovered/Not Resolved]
  - Renal neoplasm [Unknown]
  - Tumour haemorrhage [Unknown]
  - Myalgia [Unknown]

NARRATIVE: CASE EVENT DATE: 2015
